FAERS Safety Report 8277977-X (Version None)
Quarter: 2012Q2

REPORT INFORMATION
  Report Type: 
  Country: None (occurrence: None)
  Receive Date: 20120412
  Receipt Date: 20120403
  Transmission Date: 20120825
  Serious: Yes (Other)
  Sender: FDA-Public Use
  Company Number: US-NOVOPROD-345485

PATIENT
  Age: 58 Year
  Sex: Female
  Weight: 82.993 kg

DRUGS (8)
  1. PRILOSEC [Concomitant]
     Indication: GASTROOESOPHAGEAL REFLUX DISEASE
     Dosage: 20 MG, QD
     Route: 065
  2. OMEGA 3                            /01334101/ [Concomitant]
     Indication: PRODUCT USED FOR UNKNOWN INDICATION
  3. VITAMIN D [Concomitant]
     Indication: PRODUCT USED FOR UNKNOWN INDICATION
  4. VAGIFEM [Suspect]
     Indication: VULVOVAGINAL DRYNESS
     Dosage: 25 MCG, QW
     Route: 067
     Dates: end: 20100901
  5. VAGIFEM [Suspect]
     Indication: VULVOVAGINAL DRYNESS
     Dosage: 1 TO 3 TIMES PER WEEK
     Route: 067
     Dates: start: 20100901, end: 20111201
  6. LACTOBACILLUS [Concomitant]
     Indication: PRODUCT USED FOR UNKNOWN INDICATION
  7. GLUCOSAMINE + CHONDROITIN          /01430901/ [Concomitant]
     Indication: PRODUCT USED FOR UNKNOWN INDICATION
     Dosage: 750-600
  8. CALCIUM CARBONATE [Concomitant]
     Indication: PRODUCT USED FOR UNKNOWN INDICATION
     Dosage: 500 MG, UNK

REACTIONS (8)
  - DYSPNOEA [None]
  - ABDOMINAL DISCOMFORT [None]
  - CHEST PAIN [None]
  - VOMITING [None]
  - CHEST DISCOMFORT [None]
  - LOSS OF CONSCIOUSNESS [None]
  - DIARRHOEA [None]
  - NAUSEA [None]
